FAERS Safety Report 23726229 (Version 2)
Quarter: 2024Q3

REPORT INFORMATION
  Report Type: Spontaneous
  Country: DE (occurrence: DE)
  Receive Date: 20240410
  Receipt Date: 20240703
  Transmission Date: 20241016
  Serious: Yes (Other)
  Sender: NOVARTIS
  Company Number: DE-002147023-NVSC2024DE075287

PATIENT
  Sex: Female

DRUGS (1)
  1. KESIMPTA [Suspect]
     Active Substance: OFATUMUMAB
     Indication: Product used for unknown indication
     Dosage: UNK, Q4W
     Route: 065
     Dates: start: 202004

REACTIONS (2)
  - Bacterial abdominal infection [Not Recovered/Not Resolved]
  - Flatulence [Not Recovered/Not Resolved]
